FAERS Safety Report 21883386 (Version 1)
Quarter: 2023Q1

REPORT INFORMATION
  Report Type: Report from Study
  Country: US (occurrence: US)
  Receive Date: 20230119
  Receipt Date: 20230119
  Transmission Date: 20230417
  Serious: No
  Sender: FDA-Public Use
  Company Number: US-Accord-271864

PATIENT
  Sex: Female

DRUGS (5)
  1. CLOZAPINE [Suspect]
     Active Substance: CLOZAPINE
     Indication: Dementia
     Dosage: 75MG /3 TABLETS AT AT BEDTIME
  2. TRAZODONE [Concomitant]
     Active Substance: TRAZODONE HYDROCHLORIDE
     Dosage: 25MG 5PM EACH EVENING
  3. PRAZOSIN [Concomitant]
     Active Substance: PRAZOSIN
     Dosage: AT BEDTIME
  4. LORAZEPAM [Concomitant]
     Active Substance: LORAZEPAM
     Dosage: 0.5MG AS NEEDED EVERY 6 HOUR AGITATION
  5. QUETIAPINE [Concomitant]
     Active Substance: QUETIAPINE
     Dosage: 50 MG AT 3PM 50MG AT NIGHT AS NEEDED

REACTIONS (1)
  - Off label use [Unknown]
